FAERS Safety Report 7418748-3 (Version None)
Quarter: 2011Q2

REPORT INFORMATION
  Report Type: 
  Country: None (occurrence: None)
  Receive Date: 20110415
  Receipt Date: 20110412
  Transmission Date: 20111010
  Serious: No
  Sender: FDA-Public Use
  Company Number: US-PFIZER INC-2007046172

PATIENT
  Sex: Male
  Weight: 88.435 kg

DRUGS (5)
  1. DETROL LA [Concomitant]
     Indication: HYPERTONIC BLADDER
     Dosage: UNK
  2. AMBIEN [Concomitant]
     Dosage: AS NEEDED
  3. VIAGRA [Suspect]
     Indication: ERECTILE DYSFUNCTION
     Dosage: 50 MG, UNK
     Dates: start: 20030101
  4. INDOMETHACIN [Concomitant]
     Indication: INFLAMMATION
     Dosage: AS NEEDED
  5. VIAGRA [Suspect]
     Dosage: 25 MG, AS NEEDED
     Route: 048
     Dates: start: 20040101, end: 20090101

REACTIONS (4)
  - DRUG INEFFECTIVE [None]
  - NERVOUSNESS [None]
  - ERECTION INCREASED [None]
  - BENIGN PROSTATIC HYPERPLASIA [None]
